FAERS Safety Report 5662436 (Version 10)
Quarter: 2016Q1

REPORT INFORMATION
  Report Type: Spontaneous
  Country: US (occurrence: US)
  Receive Date: 20041110
  Receipt Date: 20160308
  Transmission Date: 20160526
  Serious: Yes (Disabling, Other)
  Sender: FDA-Public Use
  Company Number: US-ROCHE-385557

PATIENT
  Age: 28 Year
  Sex: Male
  Weight: 65.8 kg

DRUGS (1)
  1. ACCUTANE [Suspect]
     Active Substance: ISOTRETINOIN
     Indication: ACNE
     Route: 048
     Dates: start: 1989, end: 199201

REACTIONS (20)
  - Crohn^s disease [Not Recovered/Not Resolved]
  - Enteritis [Unknown]
  - Nausea [Unknown]
  - Cushingoid [Unknown]
  - Rectal haemorrhage [Unknown]
  - Diarrhoea haemorrhagic [Unknown]
  - Gastrointestinal disorder [Unknown]
  - Haematochezia [Unknown]
  - Vomiting [Unknown]
  - Intestinal haemorrhage [Unknown]
  - Abdominal pain [Unknown]
  - Dyspepsia [Unknown]
  - Eating disorder [Unknown]
  - Colitis [Unknown]
  - Irritable bowel syndrome [Unknown]
  - Colitis ulcerative [Unknown]
  - Inflammatory bowel disease [Unknown]
  - Haemorrhoids [Unknown]
  - Weight decreased [Unknown]
  - Arthritis enteropathic [Unknown]

NARRATIVE: CASE EVENT DATE: 20030902
